FAERS Safety Report 21068878 (Version 1)
Quarter: 2022Q3

REPORT INFORMATION
  Report Type: Spontaneous
  Country: US (occurrence: None)
  Receive Date: 20220711
  Receipt Date: 20220711
  Transmission Date: 20221027
  Serious: Yes (Hospitalization)
  Sender: FDA-Public Use
  Company Number: None

PATIENT
  Age: 65 Year
  Sex: Female
  Weight: 76 kg

DRUGS (8)
  1. YESCARTA [Suspect]
     Active Substance: AXICABTAGENE CILOLEUCEL
     Indication: Follicular lymphoma
     Dosage: FREQUENCY : ONCE;?
     Route: 041
     Dates: start: 20220429, end: 20220429
  2. ACTEMRA [Concomitant]
     Active Substance: TOCILIZUMAB
     Dates: end: 20220508
  3. anakinra (Kineret) subcutaneous injection [Concomitant]
     Dates: end: 20220512
  4. dexAMETHasone (Decadron) injection [Concomitant]
     Dates: end: 20220519
  5. levETIRAcetam (Keppra) 500 mg tablet [Concomitant]
     Dates: start: 20220428, end: 20220623
  6. ZOSYN [Concomitant]
     Active Substance: PIPERACILLIN SODIUM\TAZOBACTAM SODIUM
     Dates: end: 20220511
  7. cefepime (Maxipime [Concomitant]
     Dates: end: 20220509
  8. acyclovir (Zovirax) [Concomitant]
     Dates: start: 20220428, end: 20220710

REACTIONS (2)
  - Cytokine release syndrome [None]
  - Immune effector cell-associated neurotoxicity syndrome [None]

NARRATIVE: CASE EVENT DATE: 20220429
